FAERS Safety Report 8818627 (Version 1)
Quarter: 2012Q4

REPORT INFORMATION
  Report Type: 
  Country: US (occurrence: US)
  Receive Date: 20121001
  Receipt Date: 20121001
  Transmission Date: 20130627
  Serious: Yes (Death)
  Sender: FDA-Public Use
  Company Number: US-ROCHE-1123679

PATIENT
  Sex: Female

DRUGS (13)
  1. HERCEPTIN [Suspect]
     Indication: BREAST CANCER FEMALE
     Dosage: 160mg/dose
     Route: 065
     Dates: start: 1997, end: 2004
  2. HERCEPTIN [Suspect]
     Indication: HAEMATOLOGICAL MALIGNANCY
     Route: 065
     Dates: start: 200507
  3. XELODA [Suspect]
     Indication: PRODUCT USED FOR UNKNOWN INDICATION
     Route: 065
     Dates: start: 200507
  4. ADRIAMYCIN [Concomitant]
  5. CYTOXAN [Concomitant]
  6. METHOTREXATE [Concomitant]
     Route: 065
     Dates: start: 1997
  7. 5-FLUOROURACIL [Concomitant]
     Route: 065
     Dates: start: 1997
  8. NAVELBINE [Concomitant]
  9. TAXOTERE [Concomitant]
     Route: 065
     Dates: start: 2003
  10. TAXOTERE [Concomitant]
     Route: 065
     Dates: start: 20050912, end: 20051214
  11. GEMZAR [Concomitant]
     Dosage: 28/dec
     Route: 065
  12. CARBOPLATIN [Concomitant]
     Dosage: 28/dec
     Route: 065
  13. CYCLOPHOSPHAMIDE [Concomitant]
     Route: 065
     Dates: start: 1997

REACTIONS (2)
  - Death [Fatal]
  - Disease progression [Unknown]
